FAERS Safety Report 12741231 (Version 1)
Quarter: 2016Q3

REPORT INFORMATION
  Report Type: Spontaneous
  Country: US (occurrence: US)
  Receive Date: 20160914
  Receipt Date: 20160914
  Transmission Date: 20161109
  Serious: No
  Sender: FDA-Public Use
  Company Number: US-BAYER-2016-178441

PATIENT
  Age: 87 Year
  Sex: Male
  Weight: 74.38 kg

DRUGS (1)
  1. MIRALAX [Suspect]
     Active Substance: POLYETHYLENE GLYCOL 3350
     Indication: GASTROINTESTINAL DISORDER
     Dosage: 1 DF EVERY OTHER DAY. OR EVER 3 DAYS MANY YEARS AGO
     Route: 048

REACTIONS (1)
  - Product use issue [None]
